FAERS Safety Report 14602583 (Version 1)
Quarter: 2018Q1

REPORT INFORMATION
  Report Type: Report from Study
  Country: None (occurrence: GB)
  Receive Date: 20180306
  Receipt Date: 20180306
  Transmission Date: 20180509
  Serious: Yes (Death)
  Sender: FDA-Public Use
  Company Number: GB-ABBVIE-18K-167-2277768-00

PATIENT
  Sex: Female

DRUGS (1)
  1. HUMIRA [Suspect]
     Active Substance: ADALIMUMAB
     Indication: RHEUMATOID ARTHRITIS
     Route: 058
     Dates: start: 20030615

REACTIONS (5)
  - Sepsis [Fatal]
  - Atrial fibrillation [Fatal]
  - Pneumonia [Fatal]
  - Myocardial infarction [Fatal]
  - Cardiac failure chronic [Fatal]
